FAERS Safety Report 19793679 (Version 1)
Quarter: 2021Q3

REPORT INFORMATION
  Report Type: Spontaneous
  Country: FR (occurrence: FR)
  Receive Date: 20210906
  Receipt Date: 20210906
  Transmission Date: 20211014
  Serious: Yes (Hospitalization, Disabling)
  Sender: FDA-Public Use
  Company Number: FR-SA-2021SA243756

PATIENT
  Age: 37 Year
  Sex: Male
  Weight: 88 kg

DRUGS (15)
  1. BRICANYL [Concomitant]
     Active Substance: TERBUTALINE SULFATE
     Dosage: 0?0?1
  2. PNEUMOCOCCAL VACCINE POLYVALENT NOS [Concomitant]
     Active Substance: PNEUMOCOCCAL VACCINE POLYVALENT
     Dosage: UNK
  3. VENTOLINE [SALBUTAMOL] [Concomitant]
     Active Substance: ALBUTEROL SULFATE
     Dosage: UNK UNK, PRN
  4. NEORAL [Concomitant]
     Active Substance: CYCLOSPORINE
     Dosage: 4 DF (4 SOFT CAPSULES, 8H, 20H)
     Route: 048
     Dates: start: 20210615
  5. MODERNA COVID?19 VACCINE [Concomitant]
     Active Substance: CX-024414
     Indication: COVID-19 IMMUNISATION
     Dosage: UNK
  6. CICLOSPORIN [Concomitant]
     Active Substance: CYCLOSPORINE
     Dosage: UNK
     Route: 048
  7. CLARELUX [Concomitant]
     Active Substance: CLOBETASOL PROPIONATE
     Dosage: UNK
     Route: 003
     Dates: start: 20210615
  8. DERMOVAL [BETAMETHASONE] [Concomitant]
     Active Substance: BETAMETHASONE
     Dosage: 4 TUBES PER DAY
  9. BECOTIDE [Concomitant]
     Active Substance: BECLOMETHASONE DIPROPIONATE
     Dosage: 0?0?1
  10. PROTOPIC [Concomitant]
     Active Substance: TACROLIMUS
     Dosage: UNK
     Route: 003
  11. CICLOSPORIN [Concomitant]
     Active Substance: CYCLOSPORINE
     Dosage: 3 MG/KG, QD
     Dates: end: 202102
  12. CICLOSPORIN [Concomitant]
     Active Substance: CYCLOSPORINE
     Dosage: 200 MG, BID (2 TABLET MORNING AND EVENING)
     Dates: end: 20210719
  13. CICLOSPORIN [Concomitant]
     Active Substance: CYCLOSPORINE
     Dosage: 5 MG/KG, QD
  14. NEORAL [Concomitant]
     Active Substance: CYCLOSPORINE
     Dosage: 8 DF, QD
     Route: 048
  15. DUPIXENT [Suspect]
     Active Substance: DUPILUMAB
     Indication: DERMATITIS ATOPIC
     Dosage: 300 MG, QOW
     Route: 058
     Dates: start: 20210105, end: 20210607

REACTIONS (9)
  - Insomnia [Unknown]
  - Erythema [Recovering/Resolving]
  - Dry skin [Unknown]
  - Dermatitis atopic [Unknown]
  - Skin lesion [Not Recovered/Not Resolved]
  - Loss of personal independence in daily activities [Unknown]
  - Eczema [Recovering/Resolving]
  - Pruritus [Recovering/Resolving]
  - Skin abrasion [Unknown]

NARRATIVE: CASE EVENT DATE: 2021
